FAERS Safety Report 9058675 (Version 1)
Quarter: 2013Q1

REPORT INFORMATION
  Report Type: Report from Study
  Country: CA (occurrence: CA)
  Receive Date: 20130204
  Receipt Date: 20130204
  Transmission Date: 20140127
  Serious: Yes (Other)
  Sender: FDA-Public Use
  Company Number: CA-JNJFOC-20130113777

PATIENT
  Age: 49 None
  Sex: Male
  Weight: 98.2 kg

DRUGS (1)
  1. REMICADE [Suspect]
     Indication: RHEUMATOID ARTHRITIS
     Route: 042
     Dates: start: 20070808

REACTIONS (2)
  - Fall [Recovered/Resolved]
  - Joint dislocation [Recovered/Resolved]
